FAERS Safety Report 5912366-1 (Version None)
Quarter: 2008Q4

REPORT INFORMATION
  Report Type: 
  Country: None (occurrence: None)
  Receive Date: 20081007
  Receipt Date: 20081007
  Transmission Date: 20090506
  Serious: Yes (Other)
  Sender: FDA-Public Use
  Company Number: None

PATIENT
  Age: 17 Year
  Sex: Male
  Weight: 89.3586 kg

DRUGS (1)
  1. INVEGA [Suspect]
     Indication: AGITATION
     Dosage: 3 MG 1X/DAY PO
     Route: 048
     Dates: start: 20080906, end: 20081006

REACTIONS (5)
  - ABNORMAL BEHAVIOUR [None]
  - HEADACHE [None]
  - LOGORRHOEA [None]
  - MIGRAINE [None]
  - RASH [None]
